FAERS Safety Report 24772285 (Version 3)
Quarter: 2025Q1

REPORT INFORMATION
  Report Type: Report from Study
  Country: IE (occurrence: IE)
  Receive Date: 20241224
  Receipt Date: 20250103
  Transmission Date: 20250408
  Serious: No
  Sender: ROCHE
  Company Number: IE-ROCHE-10000165269

PATIENT
  Sex: Female

DRUGS (1)
  1. OCREVUS [Suspect]
     Active Substance: OCRELIZUMAB
     Indication: Multiple sclerosis
     Dosage: 6/12
     Route: 042

REACTIONS (3)
  - Influenza [Unknown]
  - Lower respiratory tract infection [Unknown]
  - Asthma [Unknown]
